FAERS Safety Report 11182907 (Version 4)
Quarter: 2016Q1

REPORT INFORMATION
  Report Type: Spontaneous
  Country: US (occurrence: US)
  Receive Date: 20150611
  Receipt Date: 20160226
  Transmission Date: 20160525
  Serious: Yes (Death, Hospitalization, Other)
  Sender: FDA-Public Use
  Company Number: US-009507513-1506USA006090

PATIENT
  Sex: Male
  Weight: 99.77 kg

DRUGS (2)
  1. JANUVIA [Suspect]
     Active Substance: SITAGLIPTIN PHOSPHATE
     Indication: TYPE 2 DIABETES MELLITUS
  2. JANUVIA [Suspect]
     Active Substance: SITAGLIPTIN PHOSPHATE
     Indication: TYPE 1 DIABETES MELLITUS
     Dosage: 100 MG, QD
     Route: 048
     Dates: start: 20080318, end: 20091218

REACTIONS (18)
  - Adenocarcinoma pancreas [Fatal]
  - Hiatus hernia [Unknown]
  - Gastritis [Unknown]
  - Liver function test increased [Unknown]
  - Depression [Unknown]
  - Leukocytosis [Unknown]
  - Gastrooesophageal reflux disease [Unknown]
  - Dyslipidaemia [Unknown]
  - Bile duct stenosis [Unknown]
  - Arthralgia [Unknown]
  - Knee arthroplasty [Unknown]
  - Bladder operation [Unknown]
  - Impaired gastric emptying [Unknown]
  - Barrett^s oesophagus [Unknown]
  - Bile duct stent insertion [Unknown]
  - Hypokalaemia [Unknown]
  - Product use issue [Unknown]
  - Ear tube insertion [Unknown]

NARRATIVE: CASE EVENT DATE: 20080318
